FAERS Safety Report 21095846 (Version 2)
Quarter: 2023Q2

REPORT INFORMATION
  Report Type: Report from Study
  Country: KR (occurrence: KR)
  Receive Date: 20220718
  Receipt Date: 20230410
  Transmission Date: 20230722
  Serious: Yes (Other)
  Sender: FDA-Public Use
  Company Number: KR-NOVARTISPH-NVSC2022KR161668

PATIENT
  Age: 53 Year
  Sex: Female

DRUGS (17)
  1. KISQALI FEMARA CO-PACK [Suspect]
     Active Substance: LETROZOLE\RIBOCICLIB
     Indication: Breast cancer metastatic
     Dosage: 600 MG, QD
     Route: 048
     Dates: start: 20220510, end: 20220531
  2. KISQALI FEMARA CO-PACK [Suspect]
     Active Substance: LETROZOLE\RIBOCICLIB
     Dosage: 600 MG, QD
     Route: 048
     Dates: start: 20220614, end: 20220705
  3. KISQALI FEMARA CO-PACK [Suspect]
     Active Substance: LETROZOLE\RIBOCICLIB
     Dosage: 600 MG, QD
     Route: 048
     Dates: start: 20220712, end: 20220802
  4. KISQALI FEMARA CO-PACK [Suspect]
     Active Substance: LETROZOLE\RIBOCICLIB
     Dosage: 600 MG, QD
     Route: 048
     Dates: start: 20220809, end: 20220830
  5. KISQALI FEMARA CO-PACK [Suspect]
     Active Substance: LETROZOLE\RIBOCICLIB
     Dosage: 600 MG, QD
     Route: 048
     Dates: start: 20220913, end: 20221004
  6. ZOLEDRONIC ACID [Concomitant]
     Active Substance: ZOLEDRONIC ACID
     Indication: Prophylaxis
     Dosage: 4 MG, QD
     Route: 042
     Dates: start: 20220510, end: 20220510
  7. ZOLEDRONIC ACID [Concomitant]
     Active Substance: ZOLEDRONIC ACID
     Dosage: 4 MG, QD
     Route: 042
     Dates: start: 20220614, end: 20220614
  8. FASLODEX [Concomitant]
     Active Substance: FULVESTRANT
     Indication: Breast cancer
     Dosage: 500 MG, QD
     Route: 030
     Dates: start: 20220510, end: 20220510
  9. FASLODEX [Concomitant]
     Active Substance: FULVESTRANT
     Dosage: 500 MG, QD
     Route: 030
     Dates: start: 20220524, end: 20220524
  10. FASLODEX [Concomitant]
     Active Substance: FULVESTRANT
     Dosage: 500 MG, QD
     Route: 030
     Dates: start: 20220614, end: 20220614
  11. FASLODEX [Concomitant]
     Active Substance: FULVESTRANT
     Dosage: 500 MG, QD
     Route: 030
     Dates: start: 20220712, end: 20220712
  12. FASLODEX [Concomitant]
     Active Substance: FULVESTRANT
     Dosage: 500 MG, QD
     Route: 030
     Dates: start: 20220809, end: 20220809
  13. FASLODEX [Concomitant]
     Active Substance: FULVESTRANT
     Dosage: 500 MG, QD
     Route: 030
     Dates: start: 20220913, end: 20220913
  14. NALOXONE HYDROCHLORIDE\OXYCODONE HYDROCHLORIDE [Concomitant]
     Active Substance: NALOXONE HYDROCHLORIDE\OXYCODONE HYDROCHLORIDE
     Indication: Prophylaxis
     Dosage: 1 DOSAGE FORM (1 TABLET), QD
     Route: 048
     Dates: start: 20220510
  15. NALOXONE HYDROCHLORIDE\OXYCODONE HYDROCHLORIDE [Concomitant]
     Active Substance: NALOXONE HYDROCHLORIDE\OXYCODONE HYDROCHLORIDE
     Indication: Arthralgia
  16. LAFUTIDINE [Concomitant]
     Active Substance: LAFUTIDINE
     Indication: Prophylaxis
     Dosage: 20 MG, QD
     Route: 048
     Dates: start: 20220524
  17. EASYEF [Concomitant]
     Indication: Prophylaxis
     Dosage: UNK (1 TIME/DAY) DERMAL USE
     Route: 065
     Dates: start: 20220526, end: 20220713

REACTIONS (6)
  - Neutropenia [Recovered/Resolved]
  - Neuropathy peripheral [Recovering/Resolving]
  - Mucosal inflammation [Recovering/Resolving]
  - Constipation [Recovering/Resolving]
  - Abdominal pain upper [Recovered/Resolved]
  - Paronychia [Recovering/Resolving]

NARRATIVE: CASE EVENT DATE: 20220607
